FAERS Safety Report 4281476-X (Version None)
Quarter: 2004Q1

REPORT INFORMATION
  Report Type: 
  Country: None (occurrence: None)
  Receive Date: 20040112
  Receipt Date: 20031117
  Transmission Date: 20041129
  Serious: Yes (Other)
  Sender: FDA-Public Use
  Company Number: 352168

PATIENT
  Age: 37 Year
  Sex: Male

DRUGS (1)
  1. FUZEON [Suspect]
     Indication: DRUG USE FOR UNKNOWN INDICATION
     Dosage: SUBCUTANEOUS
     Route: 058
     Dates: start: 20031115, end: 20031115

REACTIONS (5)
  - INJECTION SITE INFLAMMATION [None]
  - INJECTION SITE MASS [None]
  - INJECTION SITE REACTION [None]
  - INJECTION SITE SWELLING [None]
  - MEDICATION ERROR [None]
